FAERS Safety Report 10044764 (Version 2)
Quarter: 2014Q3

REPORT INFORMATION
  Report Type: Spontaneous
  Country: IT (occurrence: None)
  Receive Date: 20140326
  Receipt Date: 20140730
  Transmission Date: 20150326
  Serious: Yes (Other)
  Sender: FDA-Public Use
  Company Number: AUR-APL-2014-03758

PATIENT
  Age: 51 Year
  Sex: Male

DRUGS (2)
  1. AMOXICILLIN TABLETS 1G (AMOXICILLIN) TABLET, 1G [Suspect]
     Active Substance: AMOXICILLIN
     Indication: ARTHROPOD BITE
     Dosage: TOTAL
     Route: 048
     Dates: start: 20130727, end: 20130727
  2. ZYRTEC [Suspect]
     Active Substance: CETIRIZINE HYDROCHLORIDE
     Indication: ARTHROPOD BITE
     Dosage: TOTAL
     Route: 048
     Dates: start: 20130727, end: 20130727

REACTIONS (3)
  - Urticaria [None]
  - Eyelid oedema [None]
  - Swelling [None]

NARRATIVE: CASE EVENT DATE: 20130728
